FAERS Safety Report 5029427-4 (Version None)
Quarter: 2006Q2

REPORT INFORMATION
  Report Type: 
  Country: None (occurrence: None)
  Receive Date: 20060613
  Receipt Date: 20060529
  Transmission Date: 20061013
  Serious: Yes (Life-Threatening, Hospitalization, Other)
  Sender: FDA-Public Use
  Company Number: GBR-2006-0002267

PATIENT
  Age: 78 Year
  Sex: Male

DRUGS (11)
  1. SEVREDOL TABLETS  (MORPHINE SULPHATE) IR TABLET [Suspect]
     Dosage: PRN, ORAL
     Route: 048
     Dates: end: 20060416
  2. MORPHINE SULFATE [Suspect]
     Dosage: 60 MG, DAILY, ORAL
     Route: 048
     Dates: end: 20060416
  3. BISOPROLOL FUMARATE [Concomitant]
  4. RAMIPRIL [Concomitant]
  5. ATORVASTATIN CALCIUM [Concomitant]
  6. OMEPRAZOLE [Concomitant]
  7. ZOPICLONE [Concomitant]
  8. VADILEX (IFENPRODIL TARTRATE) [Concomitant]
  9. SOLUPRED (PREDNISOLONE SODIUM SULFOBENZOATE) [Concomitant]
  10. KARDEGIC (ACETYLSALICYLATE LYSINE) [Concomitant]
  11. LORAZEPAM [Concomitant]

REACTIONS (20)
  - ACCIDENTAL OVERDOSE [None]
  - ALVEOLITIS [None]
  - BLOOD PH DECREASED [None]
  - BLOOD PRESSURE DECREASED [None]
  - C-REACTIVE PROTEIN INCREASED [None]
  - CONDITION AGGRAVATED [None]
  - CONFUSIONAL STATE [None]
  - DRUG SCREEN POSITIVE [None]
  - GENERAL PHYSICAL HEALTH DETERIORATION [None]
  - HYPERKALAEMIA [None]
  - HYPONATRAEMIA [None]
  - LEUKOCYTOSIS [None]
  - MIOSIS [None]
  - NORMOCHROMIC NORMOCYTIC ANAEMIA [None]
  - PO2 INCREASED [None]
  - PROTHROMBIN TIME PROLONGED [None]
  - RALES [None]
  - RENAL FAILURE [None]
  - RESPIRATORY DISTRESS [None]
  - SHOCK [None]
